FAERS Safety Report 18897935 (Version 1)
Quarter: 2021Q1

REPORT INFORMATION
  Report Type: Spontaneous
  Country: GB (occurrence: GB)
  Receive Date: 20210216
  Receipt Date: 20210216
  Transmission Date: 20210420
  Serious: Yes (Other)
  Sender: FDA-Public Use
  Company Number: GB-ABBVIE-21K-167-3771674-00

PATIENT
  Age: 38 Year
  Sex: Male

DRUGS (1)
  1. ADALIMUMAB [Suspect]
     Active Substance: ADALIMUMAB
     Indication: INFLAMMATORY BOWEL DISEASE
     Dosage: 40MG FORTNIGHTLY
     Route: 058
     Dates: start: 20181106, end: 20210120

REACTIONS (3)
  - Eye pain [Unknown]
  - Blindness [Unknown]
  - Neuritis [Recovering/Resolving]

NARRATIVE: CASE EVENT DATE: 20210120
